FAERS Safety Report 24211576 (Version 6)
Quarter: 2025Q1

REPORT INFORMATION
  Report Type: Report from Study
  Country: BR (occurrence: BR)
  Receive Date: 20240814
  Receipt Date: 20250330
  Transmission Date: 20250408
  Serious: Yes (Other)
  Sender: NOVARTIS
  Company Number: BR-002147023-NVSC2023BR124101

PATIENT
  Age: 61 Year
  Sex: Female

DRUGS (11)
  1. KISQALI [Suspect]
     Active Substance: RIBOCICLIB
     Indication: Breast cancer female
     Route: 065
     Dates: start: 20230413
  2. KISQALI [Suspect]
     Active Substance: RIBOCICLIB
     Route: 048
  3. KISQALI [Suspect]
     Active Substance: RIBOCICLIB
     Route: 048
  4. KISQALI [Suspect]
     Active Substance: RIBOCICLIB
     Route: 065
  5. KISQALI [Suspect]
     Active Substance: RIBOCICLIB
     Dosage: 1 TABLET QD
     Route: 065
     Dates: start: 20240304
  6. KISQALI [Suspect]
     Active Substance: RIBOCICLIB
     Route: 065
  7. KISQALI [Suspect]
     Active Substance: RIBOCICLIB
     Dosage: 2 DOSAGE FORM (TABLET) QD
     Route: 065
  8. KISQALI [Suspect]
     Active Substance: RIBOCICLIB
     Route: 065
  9. ANASTROZOLE [Suspect]
     Active Substance: ANASTROZOLE
     Indication: Product used for unknown indication
     Dosage: UNK, QD
     Route: 065
  10. ANASTROZOLE [Suspect]
     Active Substance: ANASTROZOLE
     Route: 065
  11. METAMIZOLE SODIUM [Concomitant]
     Active Substance: METAMIZOLE SODIUM
     Indication: Sleep disorder
     Route: 065

REACTIONS (27)
  - Renal impairment [Not Recovered/Not Resolved]
  - Blood pressure fluctuation [Unknown]
  - Arrhythmia [Unknown]
  - Metastases to spine [Unknown]
  - Gastritis [Recovering/Resolving]
  - Pain [Recovered/Resolved]
  - Proteinuria [Unknown]
  - Speech disorder [Recovered/Resolved]
  - Urine abnormality [Unknown]
  - Cardiac disorder [Unknown]
  - Mental fatigue [Unknown]
  - Brain fog [Unknown]
  - Malaise [Recovered/Resolved]
  - Fatigue [Unknown]
  - Asthenia [Recovering/Resolving]
  - Gastritis [Recovered/Resolved]
  - Vomiting [Recovered/Resolved]
  - Renal disorder [Unknown]
  - Weight increased [Unknown]
  - Gait disturbance [Unknown]
  - Hyperhidrosis [Unknown]
  - Malaise [Unknown]
  - Blood creatinine abnormal [Unknown]
  - Blood urea abnormal [Unknown]
  - Drug ineffective [Unknown]
  - Wound [Unknown]
  - Breast discharge [Not Recovered/Not Resolved]

NARRATIVE: CASE EVENT DATE: 20230511
